FAERS Safety Report 8496042-X (Version None)
Quarter: 2012Q3

REPORT INFORMATION
  Report Type: 
  Country: None (occurrence: None)
  Receive Date: 20120709
  Receipt Date: 20120706
  Transmission Date: 20120928
  Serious: Yes (Death)
  Sender: FDA-Public Use
  Company Number: US-ROCHE-1085047

PATIENT
  Sex: Male

DRUGS (2)
  1. AVASTIN [Suspect]
     Indication: NON-SMALL CELL LUNG CANCER
     Dosage: FIRST TREATMENT
     Route: 042
     Dates: start: 20110101
  2. AVASTIN [Suspect]
     Dosage: SECOND AND THIRD TREATMENT
     Route: 042
     Dates: start: 20120101

REACTIONS (2)
  - DEATH [None]
  - DRUG INEFFECTIVE [None]
